FAERS Safety Report 9880011 (Version 3)
Quarter: 2014Q1

REPORT INFORMATION
  Report Type: Report from Study
  Country: JP (occurrence: JP)
  Receive Date: 20140207
  Receipt Date: 20140224
  Transmission Date: 20141002
  Serious: Yes (Death)
  Sender: FDA-Public Use
  Company Number: JP-ROCHE-1345427

PATIENT
  Age: 67 Year
  Sex: Male
  Weight: 63 kg

DRUGS (5)
  1. RIBAVIRIN [Suspect]
     Indication: HEPATITIS C
     Route: 048
     Dates: start: 20131129, end: 20140129
  2. SOFOSBUVIR [Suspect]
     Indication: HEPATITIS C
     Route: 048
     Dates: start: 20131129, end: 20140129
  3. METFORMIN [Concomitant]
     Route: 065
     Dates: end: 20140129
  4. VOGLIBOSE [Concomitant]
     Route: 065
     Dates: end: 20140129
  5. TAMSULOSIN [Concomitant]
     Route: 065
     Dates: end: 20140129

REACTIONS (1)
  - Cardiac arrest [Fatal]
